FAERS Safety Report 9154351 (Version 1)
Quarter: 2013Q1

REPORT INFORMATION
  Report Type: Spontaneous
  Country: US (occurrence: None)
  Receive Date: 20130206
  Receipt Date: 20130206
  Transmission Date: 20140127
  Serious: No
  Sender: FDA-Public Use
  Company Number: JPI-P-029460

PATIENT
  Age: 31 Year
  Sex: Female

DRUGS (4)
  1. XYREM (500 MILLIGRAM/MILLILITERS, SOLUTION) (SODIUM OXYBATE) [Suspect]
     Indication: NARCOLEPSY
     Dosage: 4.5 GM (2.25 GM, 2 IN 1 D) ORAL
     Route: 048
  2. ARMODAFINIL [Concomitant]
  3. FLUTICASONE/SALMETEROL [Concomitant]
  4. ALBUTEROL [Concomitant]

REACTIONS (9)
  - Pregnancy [None]
  - Abortion spontaneous [None]
  - Bronchitis [None]
  - Chronic obstructive pulmonary disease [None]
  - Asthma [None]
  - Upper respiratory tract infection [None]
  - Drug ineffective [None]
  - Weight decreased [None]
  - Exposure during pregnancy [None]
